FAERS Safety Report 10425375 (Version 1)
Quarter: 2014Q3

REPORT INFORMATION
  Report Type: Spontaneous
  Country: US (occurrence: None)
  Receive Date: 20140725
  Receipt Date: 20140725
  Transmission Date: 20150326
  Serious: No
  Sender: FDA-Public Use
  Company Number: AP356-00708-SPO-US

PATIENT
  Age: 55 Year
  Sex: Female
  Weight: 106.6 kg

DRUGS (4)
  1. DETROL LA [Concomitant]
     Active Substance: TOLTERODINE TARTRATE
  2. LANTUS INSULIN (INSULIN GLARDINE) [Concomitant]
  3. NEXIUM (ESMOPREAZLE MAGNESIUM) [Concomitant]
  4. BELVIQ [Suspect]
     Active Substance: LORCASERIN HYDROCHLORIDE
     Indication: WEIGHT DECREASED
     Route: 048
     Dates: start: 201402, end: 201402

REACTIONS (1)
  - Galactorrhoea [None]

NARRATIVE: CASE EVENT DATE: 201402
